FAERS Safety Report 8407044-3 (Version None)
Quarter: 2012Q2

REPORT INFORMATION
  Report Type: 
  Country: None (occurrence: None)
  Receive Date: 20120323
  Receipt Date: 20110617
  Transmission Date: 20120825
  Serious: Yes (Other)
  Sender: FDA-Public Use
  Company Number: 163-21880-11052372

PATIENT
  Age: 75 Year
  Sex: Male

DRUGS (19)
  1. COZAAR [Concomitant]
  2. PREDNISONE [Concomitant]
  3. ACTONEL [Concomitant]
  4. PROGRAF [Concomitant]
  5. FOLIC ACID (FOLIC ACID)(UNKNOWN) [Concomitant]
  6. VITAMIN B12 (CYANOCOBALAMIN)(PILL) [Concomitant]
  7. METOPROLOL TARTRATE [Concomitant]
  8. CINNAMON (CINNAMOMUM VERUM)(UNKNOWN) [Concomitant]
  9. NATURAL B12 (CYANOCOBALAMIN)(UNKNOWN) [Concomitant]
  10. DEXAMETHASONE [Suspect]
     Indication: PRODUCT USED FOR UNKNOWN INDICATION
  11. REVLIMID [Suspect]
     Indication: MULTIPLE MYELOMA
     Dosage: 45 MG, DAILY X 28 DAYS, PO
     Route: 048
     Dates: start: 20110222
  12. ALFUZOSIN (ALFUZOSIN)(UNKNOWN) [Concomitant]
  13. LEVOTHYROXINE SODIUM [Concomitant]
  14. NEXIUM [Concomitant]
  15. FISH OIL (FISH OIL)(UNKNOWN) [Concomitant]
  16. GLYBURIDE [Concomitant]
  17. NEUPOGEN [Concomitant]
  18. SEPTRA DS (BACTRIM)(UNKNOWN) [Concomitant]
  19. UROXATRAL (ALFUZOSIN HYDROCHLORIDE)(UNKNOWN) [Concomitant]

REACTIONS (3)
  - BLOOD GLUCOSE INCREASED [None]
  - ANAEMIA [None]
  - INSOMNIA [None]
